FAERS Safety Report 6494502-4 (Version None)
Quarter: 2009Q4

REPORT INFORMATION
  Report Type: 
  Country: None (occurrence: None)
  Receive Date: 20091214
  Receipt Date: 20090225
  Transmission Date: 20100525
  Serious: No
  Sender: FDA-Public Use
  Company Number: US-BRISTOL-MYERS SQUIBB COMPANY-14520928

PATIENT
  Age: 5 Decade
  Sex: Female

DRUGS (2)
  1. ABILIFY [Suspect]
     Dosage: STARTED WITH 5 MG-DISCONTINUED + RESTARTED WITH 2MG AND DISCONTINUED
  2. CYMBALTA [Suspect]

REACTIONS (2)
  - ATAXIA [None]
  - FALL [None]
